FAERS Safety Report 8795185 (Version 2)
Quarter: 2015Q2

REPORT INFORMATION
  Report Type: Report from Study
  Country: US (occurrence: US)
  Receive Date: 20120918
  Receipt Date: 20150406
  Transmission Date: 20150821
  Serious: Yes (Death)
  Sender: FDA-Public Use
  Company Number: US-ROCHE-1129499

PATIENT
  Sex: Female

DRUGS (10)
  1. XELODA [Suspect]
     Active Substance: CAPECITABINE
     Indication: PRODUCT USED FOR UNKNOWN INDICATION
     Route: 048
  2. XELODA [Suspect]
     Active Substance: CAPECITABINE
     Route: 048
  3. ANZEMET [Concomitant]
     Active Substance: DOLASETRON MESYLATE
     Route: 042
  4. ABRAXANE [Concomitant]
     Active Substance: PACLITAXEL
     Route: 042
  5. DECADRON [Concomitant]
     Active Substance: DEXAMETHASONE
     Route: 042
  6. AVASTIN [Suspect]
     Active Substance: BEVACIZUMAB
     Indication: BREAST CANCER FEMALE
     Route: 042
  7. AVASTIN [Suspect]
     Active Substance: BEVACIZUMAB
     Indication: NEOPLASM MALIGNANT
  8. AVASTIN [Suspect]
     Active Substance: BEVACIZUMAB
     Indication: BONE CANCER
     Route: 042
  9. NAPROSYN [Suspect]
     Active Substance: NAPROXEN
     Indication: PRODUCT USED FOR UNKNOWN INDICATION
     Route: 065
  10. PROCRIT [Concomitant]
     Active Substance: ERYTHROPOIETIN
     Dosage: 40X10^3 UNITS
     Route: 058

REACTIONS (5)
  - Death [Fatal]
  - Neuropathy peripheral [Unknown]
  - Drug intolerance [Unknown]
  - Somnolence [Unknown]
  - Fatigue [Unknown]
